FAERS Safety Report 5446810-3 (Version None)
Quarter: 2007Q3

REPORT INFORMATION
  Report Type: 
  Country: None (occurrence: None)
  Receive Date: 20070802
  Receipt Date: 20070326
  Transmission Date: 20080115
  Serious: Yes (Hospitalization)
  Sender: FDA-Public Use
  Company Number: MIN-00160

PATIENT
  Age: 20 Year
  Sex: Female
  Weight: 50 kg

DRUGS (3)
  1. MINOCYCLINE HCL [Suspect]
     Indication: ACNE
     Dosage: 150 MG, QD, PO
     Route: 048
  2. MINOCYCLINE HCL [Suspect]
     Dosage: 50 MG, 1 DOSE, PO
     Route: 048
  3. FLAVIN ADENINE DINUCLEOTIDE (VITAMIN B2) [Concomitant]

REACTIONS (1)
  - DRUG HYPERSENSITIVITY [None]
